FAERS Safety Report 8080236-1 (Version None)
Quarter: 2012Q1

REPORT INFORMATION
  Report Type: 
  Country: None (occurrence: None)
  Receive Date: 20120127
  Receipt Date: 20110223
  Transmission Date: 20120608
  Serious: No
  Sender: FDA-Public Use
  Company Number: US-ABBOTT-11P-163-0707775-00

PATIENT
  Sex: Female
  Weight: 90.8 kg

DRUGS (11)
  1. PLAQUENIL [Concomitant]
     Indication: RHEUMATOID ARTHRITIS
  2. AZATHIOPRINE [Concomitant]
     Indication: RHEUMATOID ARTHRITIS
  3. ERGOCALCIFEROL [Concomitant]
     Indication: VITAMIN D DECREASED
  4. HUMIRA [Suspect]
     Dates: end: 20110101
  5. COLCHICINE [Concomitant]
     Indication: RHEUMATOID ARTHRITIS
  6. ALLOPURINOL [Concomitant]
     Indication: GOUT
  7. HUMIRA [Suspect]
     Indication: RHEUMATOID ARTHRITIS
     Dates: start: 20090101
  8. BENICAR [Concomitant]
     Indication: HYPERTENSION
  9. DEXILANT [Concomitant]
     Indication: GASTROOESOPHAGEAL REFLUX DISEASE
  10. INDOMETHACIN [Concomitant]
     Indication: RHEUMATOID ARTHRITIS
  11. SYNTHROID [Concomitant]
     Indication: HYPOTHYROIDISM

REACTIONS (4)
  - DRUG INEFFECTIVE [None]
  - MUSCLE SPASMS [None]
  - DRUG DOSE OMISSION [None]
  - PAIN [None]
